FAERS Safety Report 14292762 (Version 1)
Quarter: 2017Q4

REPORT INFORMATION
  Report Type: Spontaneous
  Country: CH (occurrence: CH)
  Receive Date: 20171215
  Receipt Date: 20171215
  Transmission Date: 20180321
  Serious: Yes (Death, Life-Threatening, Hospitalization)
  Sender: FDA-Public Use
  Company Number: CH-SA-2017SA246933

PATIENT
  Age: 83 Year
  Sex: Female

DRUGS (22)
  1. LASIX [Suspect]
     Active Substance: FUROSEMIDE
     Indication: HYPERTENSIVE CARDIOMYOPATHY
     Route: 065
     Dates: end: 201711
  2. AMIKIN [Suspect]
     Active Substance: AMIKACIN SULFATE
     Indication: SEPSIS
     Route: 041
     Dates: start: 20171107, end: 20171110
  3. AMLODIPIN [Suspect]
     Active Substance: AMLODIPINE BESYLATE
     Indication: HYPERTENSION
     Route: 048
     Dates: start: 201710, end: 20171107
  4. TAZOBAC [Concomitant]
     Active Substance: PIPERACILLIN SODIUM\TAZOBACTAM SODIUM
     Route: 065
     Dates: start: 20171110, end: 20171111
  5. STILNOX [Suspect]
     Active Substance: ZOLPIDEM TARTRATE
     Indication: INSOMNIA
     Route: 048
     Dates: start: 201710, end: 20171107
  6. FRAGMIN [Concomitant]
     Active Substance: DALTEPARIN SODIUM
     Route: 065
     Dates: start: 201710
  7. ASPIRIN CARDIO [Concomitant]
     Active Substance: ASPIRIN
  8. OXYCONTIN [Suspect]
     Active Substance: OXYCODONE HYDROCHLORIDE
     Indication: ARTHRALGIA
     Route: 048
     Dates: start: 20171101, end: 20171107
  9. TARGIN [Suspect]
     Active Substance: NALOXONE HYDROCHLORIDE\OXYCODONE HYDROCHLORIDE
     Indication: ARTHRALGIA
     Route: 048
     Dates: start: 20170930, end: 20170930
  10. CANDESARTAN. [Concomitant]
     Active Substance: CANDESARTAN
     Indication: HYPERTENSION
     Route: 048
  11. SPIRIVA [Concomitant]
     Active Substance: TIOTROPIUM BROMIDE MONOHYDRATE
  12. DAFALGAN [Suspect]
     Active Substance: ACETAMINOPHEN
     Indication: POSTOPERATIVE ANALGESIA
     Route: 048
     Dates: start: 20170930, end: 20171106
  13. CEFEPIME [Suspect]
     Active Substance: CEFEPIME HYDROCHLORIDE
     Indication: SEPSIS
     Dosage: DOSAGE FORM WAS DRY VIALS
     Route: 041
     Dates: start: 20171107, end: 20171110
  14. TRITTICO [Suspect]
     Active Substance: TRAZODONE HYDROCHLORIDE
     Route: 048
     Dates: start: 201710, end: 20171107
  15. KLACID [Suspect]
     Active Substance: CLARITHROMYCIN
     Indication: SEPSIS
     Route: 041
     Dates: start: 20171108, end: 20171110
  16. DOSPIR [Concomitant]
     Active Substance: ALBUTEROL SULFATE\IPRATROPIUM BROMIDE
  17. ROCEPHIN [Concomitant]
     Active Substance: CEFTRIAXONE SODIUM
     Indication: SEPSIS
     Route: 041
     Dates: start: 20171106, end: 20171106
  18. CARVEDILOL. [Concomitant]
     Active Substance: CARVEDILOL
     Route: 065
  19. NOVALGIN [Suspect]
     Active Substance: METAMIZOLE SODIUM
     Indication: POSTOPERATIVE ANALGESIA
     Route: 048
     Dates: start: 20170930, end: 20171106
  20. CHONDROSULF [Concomitant]
     Active Substance: CHONDROITIN SULFATE (CHICKEN)
     Route: 065
  21. VITAMIN D3 [Concomitant]
     Active Substance: CHOLECALCIFEROL
  22. SYMBICORT [Concomitant]
     Active Substance: BUDESONIDE\FORMOTEROL FUMARATE DIHYDRATE

REACTIONS (7)
  - Neutropenic sepsis [Recovering/Resolving]
  - Cholestatic liver injury [Recovered/Resolved]
  - Chemotherapeutic drug level increased [Recovered/Resolved]
  - Encephalopathy [Unknown]
  - Acute kidney injury [Recovered/Resolved]
  - Agranulocytosis [Recovered/Resolved]
  - Epilepsy [Unknown]

NARRATIVE: CASE EVENT DATE: 20171106
